FAERS Safety Report 16540725 (Version 1)
Quarter: 2019Q3

REPORT INFORMATION
  Report Type: Spontaneous
  Country: US (occurrence: US)
  Receive Date: 20190707
  Receipt Date: 20190707
  Transmission Date: 20191004
  Serious: Yes (Other)
  Sender: FDA-Public Use
  Company Number: None

PATIENT
  Age: 40 Year
  Sex: Male
  Weight: 153 kg

DRUGS (1)
  1. FUROSEMIDE. [Suspect]
     Active Substance: FUROSEMIDE
     Indication: CARDIAC FAILURE CONGESTIVE
     Route: 048
     Dates: start: 20190615, end: 20190705

REACTIONS (5)
  - Product substitution issue [None]
  - Fatigue [None]
  - Atrial fibrillation [None]
  - Fluid retention [None]
  - Asthenia [None]

NARRATIVE: CASE EVENT DATE: 20190625
